FAERS Safety Report 9324363 (Version 1)
Quarter: 2013Q2

REPORT INFORMATION
  Report Type: Spontaneous
  Country: IT (occurrence: IT)
  Receive Date: 20130603
  Receipt Date: 20130603
  Transmission Date: 20140414
  Serious: Yes (Life-Threatening)
  Sender: FDA-Public Use
  Company Number: IT-ELI_LILLY_AND_COMPANY-IT201305006177

PATIENT
  Age: 42 Year
  Sex: Male

DRUGS (1)
  1. ZYPADHERA [Suspect]
     Indication: SCHIZOID PERSONALITY DISORDER
     Dosage: UNK, UNKNOWN
     Route: 030
     Dates: start: 201209, end: 201304

REACTIONS (2)
  - Hypertensive crisis [Unknown]
  - Dizziness [Unknown]
